FAERS Safety Report 7519170-1 (Version None)
Quarter: 2011Q2

REPORT INFORMATION
  Report Type: 
  Country: None (occurrence: None)
  Receive Date: 20110602
  Receipt Date: 20110524
  Transmission Date: 20111010
  Serious: Yes (Other)
  Sender: FDA-Public Use
  Company Number: US-ROCHE-778898

PATIENT
  Sex: Female

DRUGS (2)
  1. FOSAMAX [Suspect]
     Indication: OSTEOPOROSIS
     Route: 065
     Dates: start: 19990101, end: 20080101
  2. BONIVA [Suspect]
     Indication: OSTEOPOROSIS
     Route: 065
     Dates: start: 20080101, end: 20090101

REACTIONS (6)
  - STRESS FRACTURE [None]
  - ANXIETY [None]
  - LOW TURNOVER OSTEOPATHY [None]
  - BONE DISORDER [None]
  - FEMUR FRACTURE [None]
  - EMOTIONAL DISTRESS [None]
